FAERS Safety Report 18014483 (Version 2)
Quarter: 2020Q3

REPORT INFORMATION
  Report Type: Report from Study
  Country: None (occurrence: CO)
  Receive Date: 20200713
  Receipt Date: 20200729
  Transmission Date: 20201103
  Serious: Yes (Other)
  Sender: FDA-Public Use
  Company Number: CO-ABBVIE-18K-036-2606621-00

PATIENT
  Age: 58 Year
  Sex: Female
  Weight: 90 kg

DRUGS (3)
  1. HUMIRA [Suspect]
     Active Substance: ADALIMUMAB
     Indication: CROHN^S DISEASE
     Route: 058
     Dates: start: 20180413
  2. HUMIRA [Suspect]
     Active Substance: ADALIMUMAB
     Indication: CROHN^S DISEASE
     Dosage: HUMIRA AC STARTED IN UNKNOWN DATE
     Route: 058
  3. ACETAMINOPHEN. [Concomitant]
     Active Substance: ACETAMINOPHEN
     Indication: PRODUCT USED FOR UNKNOWN INDICATION

REACTIONS (17)
  - Intestinal obstruction [Recovering/Resolving]
  - Haematoma [Recovering/Resolving]
  - Type 2 diabetes mellitus [Recovering/Resolving]
  - Pain in extremity [Recovering/Resolving]
  - Haemorrhoids [Recovering/Resolving]
  - Dizziness [Recovering/Resolving]
  - Astigmatism [Recovering/Resolving]
  - Abdominal pain upper [Recovering/Resolving]
  - Sleep disorder [Recovering/Resolving]
  - Blood triglycerides increased [Recovering/Resolving]
  - Headache [Recovering/Resolving]
  - Back pain [Recovering/Resolving]
  - Vertigo [Recovering/Resolving]
  - Anxiety [Recovering/Resolving]
  - Blood cholesterol increased [Recovering/Resolving]
  - Constipation [Recovering/Resolving]
  - Anal abscess [Recovered/Resolved]

NARRATIVE: CASE EVENT DATE: 201807
